FAERS Safety Report 16480607 (Version 5)
Quarter: 2020Q3

REPORT INFORMATION
  Report Type: Spontaneous
  Country: RO (occurrence: RO)
  Receive Date: 20190626
  Receipt Date: 20200917
  Transmission Date: 20201102
  Serious: Yes (Hospitalization, Other)
  Sender: FDA-Public Use
  Company Number: PHHY2019RO142507

PATIENT
  Age: 42 Year
  Sex: Male

DRUGS (17)
  1. OMBITASVIR [Interacting]
     Active Substance: OMBITASVIR
     Indication: ANTIVIRAL TREATMENT
  2. PREDNISONE. [Suspect]
     Active Substance: PREDNISONE
     Indication: RENAL TRANSPLANT
     Dosage: 30 MG, QD (IN THE FIRST 6 MONTHS)
     Route: 065
  3. PREDNISONE. [Suspect]
     Active Substance: PREDNISONE
     Indication: IMMUNOSUPPRESSION
  4. MYCOPHENOLATE MOFETIL. [Suspect]
     Active Substance: MYCOPHENOLATE MOFETIL
     Indication: IMMUNOSUPPRESSION
  5. TACROLIMUS. [Suspect]
     Active Substance: TACROLIMUS
     Indication: CHRONIC HEPATITIS C
     Dosage: 2 MG, QD
     Route: 065
  6. RITONAVIR. [Interacting]
     Active Substance: RITONAVIR
     Indication: ANTIVIRAL TREATMENT
  7. PARITAPREVIR [Interacting]
     Active Substance: PARITAPREVIR
     Indication: CHRONIC HEPATITIS C
     Dosage: UNK
     Route: 048
  8. MYCOPHENOLATE MOFETIL. [Suspect]
     Active Substance: MYCOPHENOLATE MOFETIL
     Indication: RENAL TRANSPLANT
     Dosage: 1.5 G, QD  (IN THE FIRST 6 MONTHS)
     Route: 065
  9. PARITAPREVIR [Interacting]
     Active Substance: PARITAPREVIR
     Indication: ANTIVIRAL TREATMENT
  10. DASABUVIR [Interacting]
     Active Substance: DASABUVIR
     Indication: CHRONIC HEPATITIS C
     Dosage: IN THE MORNING AND EVENING, DURING MEALS.
     Route: 048
  11. DASABUVIR [Interacting]
     Active Substance: DASABUVIR
     Indication: HEPATITIS C
  12. PREDNISONE. [Suspect]
     Active Substance: PREDNISONE
     Indication: IMMUNOSUPPRESSANT DRUG THERAPY
     Dosage: 5 MG, QD (FOR THE NEXT YEAR AND A HALF)
     Route: 065
  13. TACROLIMUS. [Suspect]
     Active Substance: TACROLIMUS
     Indication: IMMUNOSUPPRESSION
     Dosage: 2 MG, QW
     Route: 065
  14. RITONAVIR. [Interacting]
     Active Substance: RITONAVIR
     Indication: CHRONIC HEPATITIS C
     Dosage: UNK
     Route: 048
  15. OMBITASVIR [Interacting]
     Active Substance: OMBITASVIR
     Indication: CHRONIC HEPATITIS C
     Dosage: UNK
     Route: 048
  16. DASABUVIR [Interacting]
     Active Substance: DASABUVIR
     Indication: ANTIVIRAL TREATMENT
  17. MYCOPHENOLATE MOFETIL. [Suspect]
     Active Substance: MYCOPHENOLATE MOFETIL
     Indication: IMMUNOSUPPRESSANT DRUG THERAPY
     Dosage: 1 MG, QD (FOR THE NEXT YEAR AND A HALF)
     Route: 065

REACTIONS (18)
  - Infection reactivation [Recovered/Resolved]
  - Drug interaction [Unknown]
  - Fatigue [Unknown]
  - Nausea [Unknown]
  - Thirst [Unknown]
  - Pruritus [Unknown]
  - Electrocardiogram T wave abnormal [Unknown]
  - Vision blurred [Unknown]
  - Immunosuppressant drug level increased [Recovered/Resolved]
  - Accidental overdose [Unknown]
  - Diabetes mellitus [Not Recovered/Not Resolved]
  - Dry skin [Unknown]
  - Drug level increased [Recovered/Resolved]
  - Product use in unapproved indication [Unknown]
  - Dry mouth [Unknown]
  - Accidental exposure to product [Unknown]
  - Hyperglycaemia [Recovered/Resolved]
  - Confusional state [Unknown]
